FAERS Safety Report 15200092 (Version 1)
Quarter: 2018Q3

REPORT INFORMATION
  Report Type: Spontaneous
  Country: ES (occurrence: ES)
  Receive Date: 20180726
  Receipt Date: 20180726
  Transmission Date: 20181010
  Serious: Yes (Hospitalization)
  Sender: FDA-Public Use
  Company Number: ES-TEVA-2018-ES-929180

PATIENT
  Age: 85 Year
  Sex: Female

DRUGS (1)
  1. PREDNISONA (886A) [Suspect]
     Active Substance: PREDNISONE
     Indication: BRONCHIAL HYPERREACTIVITY
     Dosage: 10 MILLIGRAM DAILY;
     Route: 048
     Dates: start: 20171020

REACTIONS (1)
  - Diabetic hyperglycaemic coma [Recovering/Resolving]

NARRATIVE: CASE EVENT DATE: 20171101
